FAERS Safety Report 8846582 (Version 1)
Quarter: 2012Q4

REPORT INFORMATION
  Report Type: 
  Country: FR (occurrence: FR)
  Receive Date: 20121017
  Receipt Date: 20121017
  Transmission Date: 20130627
  Serious: Yes (Other)
  Sender: FDA-Public Use
  Company Number: FR-BRISTOL-MYERS SQUIBB COMPANY-17026394

PATIENT
  Age: 7 None
  Sex: Female

DRUGS (1)
  1. SPRYCEL [Suspect]
     Indication: CHRONIC MYELOID LEUKAEMIA
     Dosage: reduced to 80mg per day
     Dates: end: 201208

REACTIONS (4)
  - Liver function test abnormal [Recovered/Resolved]
  - Lichen planus [Recovered/Resolved]
  - Lymphadenopathy [Recovering/Resolving]
  - No therapeutic response [Unknown]
